FAERS Safety Report 5246116-1 (Version None)
Quarter: 2007Q1

REPORT INFORMATION
  Report Type: 
  Country: None (occurrence: None)
  Receive Date: 20070220
  Receipt Date: 20070123
  Transmission Date: 20070707
  Serious: Yes (Hospitalization)
  Sender: FDA-Public Use
  Company Number: 2006BI017130

PATIENT
  Age: 34 Year
  Sex: Female
  Weight: 71 kg

DRUGS (3)
  1. AVONEX [Suspect]
     Indication: MULTIPLE SCLEROSIS
     Dosage: 30 UG;QW;IM
     Route: 030
     Dates: start: 20050101
  2. PANTOZOL [Concomitant]
  3. BUSCOPAN PLUS [Concomitant]

REACTIONS (2)
  - CHOLELITHIASIS [None]
  - DYSPEPSIA [None]
